FAERS Safety Report 5878925-X (Version None)
Quarter: 2008Q3

REPORT INFORMATION
  Report Type: 
  Country: None (occurrence: None)
  Receive Date: 20080910
  Receipt Date: 20080827
  Transmission Date: 20090109
  Serious: Yes (Other)
  Sender: FDA-Public Use
  Company Number: 1000000747

PATIENT
  Sex: Female

DRUGS (1)
  1. FOSFOMYCIN (FOSFOMYCIN TROMETAMOL) (LIQUID) [Suspect]
     Dosage: 3 GM (3 GM, ONCE), ORAL
     Route: 048
     Dates: start: 20080801, end: 20080801

REACTIONS (3)
  - CEREBRAL INFARCTION [None]
  - COORDINATION ABNORMAL [None]
  - MOVEMENT DISORDER [None]
